FAERS Safety Report 17336525 (Version 2)
Quarter: 2020Q4

REPORT INFORMATION
  Report Type: Report from Study
  Country: BR (occurrence: BR)
  Receive Date: 20200128
  Receipt Date: 20201215
  Transmission Date: 20210113
  Serious: Yes (Other)
  Sender: FDA-Public Use
  Company Number: BR-JNJFOC-20200127134

PATIENT
  Age: 38 Year
  Sex: Female

DRUGS (1)
  1. INFLIXIMAB, RECOMBINANT [Suspect]
     Active Substance: INFLIXIMAB
     Indication: CROHN^S DISEASE
     Dosage: LOADING DOSE, 5 OR 6 VIALS
     Route: 042
     Dates: start: 201909, end: 20191002

REACTIONS (2)
  - Infusion related reaction [Unknown]
  - Respiratory arrest [Unknown]
